FAERS Safety Report 9678508 (Version 1)
Quarter: 2013Q4

REPORT INFORMATION
  Report Type: Spontaneous
  Country: JP (occurrence: JP)
  Receive Date: 20131108
  Receipt Date: 20131108
  Transmission Date: 20140711
  Serious: Yes (Hospitalization)
  Sender: FDA-Public Use
  Company Number: JP-SA-2013SA112223

PATIENT
  Age: 42 Year
  Sex: Female

DRUGS (8)
  1. INSULIN GLARGINE [Suspect]
     Indication: TYPE 1 DIABETES MELLITUS
     Route: 065
  2. INSULIN GLARGINE [Suspect]
     Indication: SUICIDE ATTEMPT
     Route: 065
  3. INSULIN GLARGINE [Suspect]
     Indication: TYPE 1 DIABETES MELLITUS
     Dosage: DOSE:600 UNIT(S)
     Route: 058
     Dates: start: 20110514, end: 20110514
  4. INSULIN GLARGINE [Suspect]
     Indication: SUICIDE ATTEMPT
     Dosage: DOSE:600 UNIT(S)
     Route: 058
     Dates: start: 20110514, end: 20110514
  5. INSULIN LISPRO [Suspect]
     Indication: TYPE 1 DIABETES MELLITUS
     Route: 065
  6. INSULIN LISPRO [Suspect]
     Indication: SUICIDE ATTEMPT
     Route: 065
  7. INSULIN LISPRO [Suspect]
     Indication: TYPE 1 DIABETES MELLITUS
     Dosage: DOSE: APPROXIMATELY 3000 UNITS
     Route: 058
     Dates: start: 20110514, end: 20110514
  8. INSULIN LISPRO [Suspect]
     Indication: SUICIDE ATTEMPT
     Dosage: DOSE: APPROXIMATELY 3000 UNITS
     Route: 058
     Dates: start: 20110514, end: 20110514

REACTIONS (3)
  - Suicide attempt [Unknown]
  - Intentional overdose [Unknown]
  - Hypoglycaemia [Unknown]
